FAERS Safety Report 16037870 (Version 2)
Quarter: 2019Q2

REPORT INFORMATION
  Report Type: Report from Study
  Country: RU (occurrence: RU)
  Receive Date: 20190305
  Receipt Date: 20190424
  Transmission Date: 20190711
  Serious: Yes (Other)
  Sender: FDA-Public Use
  Company Number: RU-ASTRAZENECA-2019SE36379

PATIENT
  Age: 60 Year
  Sex: Female
  Weight: 101 kg

DRUGS (4)
  1. INDAPAMIDE. [Concomitant]
     Active Substance: INDAPAMIDE
  2. DIABETON [Concomitant]
     Active Substance: GLICLAZIDE
  3. GALVUS [Concomitant]
     Active Substance: VILDAGLIPTIN
  4. FORXIGA [Suspect]
     Active Substance: DAPAGLIFLOZIN
     Indication: TYPE 2 DIABETES MELLITUS
     Dosage: 10.0MG UNKNOWN
     Route: 048

REACTIONS (6)
  - Visual impairment [Unknown]
  - Intentional product misuse [Unknown]
  - Groin infection [Unknown]
  - Thrombosis [Unknown]
  - Discomfort [Unknown]
  - Blood pressure fluctuation [Not Recovered/Not Resolved]

NARRATIVE: CASE EVENT DATE: 201802
